FAERS Safety Report 13709455 (Version 2)
Quarter: 2017Q3

REPORT INFORMATION
  Report Type: Spontaneous
  Country: US (occurrence: US)
  Receive Date: 20170703
  Receipt Date: 20170705
  Transmission Date: 20171127
  Serious: No
  Sender: FDA-Public Use
  Company Number: US-TEVA-782997ACC

PATIENT
  Sex: Female

DRUGS (1)
  1. COPAXONE [Suspect]
     Active Substance: GLATIRAMER ACETATE
     Dosage: UNKNOWN FORM STRENGTH
     Route: 065

REACTIONS (2)
  - Injection site pain [Recovered/Resolved]
  - Injection site discomfort [Unknown]
